FAERS Safety Report 21334290 (Version 1)
Quarter: 2022Q3

REPORT INFORMATION
  Report Type: Spontaneous
  Country: FR (occurrence: FR)
  Receive Date: 20220914
  Receipt Date: 20220914
  Transmission Date: 20221026
  Serious: Yes (Life-Threatening)
  Sender: FDA-Public Use
  Company Number: None

PATIENT
  Age: 49 Year
  Sex: Male

DRUGS (2)
  1. ACAMPROSATE [Suspect]
     Active Substance: ACAMPROSATE
     Indication: Alcoholism
     Dosage: NOT SPECIFIED
     Route: 048
     Dates: start: 20210125
  2. DISULFIRAM [Suspect]
     Active Substance: DISULFIRAM
     Indication: Alcoholism
     Dosage: NOT SPECIFIED
     Route: 048
     Dates: start: 20210125

REACTIONS (1)
  - Drug reaction with eosinophilia and systemic symptoms [Recovered/Resolved]

NARRATIVE: CASE EVENT DATE: 20210412
